FAERS Safety Report 4471520-9 (Version None)
Quarter: 2004Q4

REPORT INFORMATION
  Report Type: 
  Country: None (occurrence: None)
  Receive Date: 20041006
  Receipt Date: 20040923
  Transmission Date: 20050328
  Serious: Yes (Death)
  Sender: FDA-Public Use
  Company Number: 2004042966

PATIENT
  Age: 60 Year
  Sex: Male

DRUGS (4)
  1. GEODON [Suspect]
     Indication: DEPRESSION
     Dosage: 40 MG (20 MG, 2 IN 1 D), ORAL
     Route: 048
     Dates: start: 20040604, end: 20040610
  2. ZOLOFT [Suspect]
     Indication: DEPRESSION
     Dosage: 100 MG (1 IN 1 D), ORAL
     Route: 048
     Dates: start: 19890101, end: 20040101
  3. ZALEPLON [Suspect]
     Indication: INSOMNIA
     Dosage: 10 MG (1 IN 1 D)
     Dates: start: 20040607, end: 20040601
  4. VENLAFAXINE HCL [Concomitant]

REACTIONS (5)
  - ACCIDENT [None]
  - COMPLETED SUICIDE [None]
  - DEPRESSION [None]
  - INSOMNIA [None]
  - PYROMANIA [None]
